FAERS Safety Report 18982183 (Version 1)
Quarter: 2021Q1

REPORT INFORMATION
  Report Type: Spontaneous
  Country: NL (occurrence: NL)
  Receive Date: 20210308
  Receipt Date: 20210308
  Transmission Date: 20210420
  Serious: Yes (Other)
  Sender: FDA-Public Use
  Company Number: NL-TEVA-2021-NL-1888459

PATIENT
  Age: 80 Year
  Sex: Female
  Weight: 44.1 kg

DRUGS (11)
  1. PANTOPRAZOL TABLET MSR 40MG / BRAND NAME NOT SPECIFIED [Suspect]
     Active Substance: PANTOPRAZOLE
     Indication: PROPHYLAXIS
     Dosage: 40 MILLIGRAM DAILY;
     Dates: start: 20201117, end: 20210204
  2. MACROGOL/ZOUTEN PDR V DRANK (MOVIC/MOLAX/LAXT/GEN) / BRAND NAME NOT SP [Concomitant]
     Dosage: UNIT DOSE:1DOSAGEFORM
  3. CLOPIDOGREL TABLET   75MG / BRAND NAME NOT SPECIFIED [Concomitant]
     Active Substance: CLOPIDOGREL BISULFATE
     Dosage: 75 MG (MILLIGRAM)THERAPY START DATE:ASKED BUT UNKNOWN:THERAPY END DATE :ASKED BUT UNKNOWN
  4. NADROPARINE INJVLST  9500IE/ML / FRAXIPARINE INJVLST 2850IE/0,3ML  (95 [Concomitant]
     Dosage: 9500 IU / ML (UNITS PER MILLILITER):UNIT DOSE:1DOSAGEFORM
  5. TRIAMCINOLONACETONIDE INJSUSP 40MG/ML (PARENT) / KENACORT A 40 INJECTI [Concomitant]
     Dosage: 40 MG / ML (MILLIGRAMS PER MILLILITER):THERAPY START DATE:ASKED BUT UNKNOWN:THERAPY END DATE :ASKED
  6. AMLODIPINE TABLET   5MG / BRAND NAME NOT SPECIFIED [Concomitant]
     Active Substance: AMLODIPINE BESYLATE
     Dosage: 5 MG (MILLIGRAM)THERAPY START DATE:ASKED BUT UNKNOWN:THERAPY END DATE :ASKED BUT UNKNOWN
  7. TIOTROPIUM INHALATIECAPSULE 18UG / BRAND NAME NOT SPECIFIED [Concomitant]
     Dosage: 18 UG (MICROGRAMS):UNIT DOSE:1DOSAGEFORM
  8. DENOSUMAB INJVLST 60MG/ML / PROLIA 60 INJVLST 60MG/ML WWSP 1ML [Concomitant]
     Dosage: 60 MG / ML (MILLIGRAMS PER MILLILITER):UNIT DOSE:1DOSAGEFORM
  9. SALBUTAMOL AEROSOL 100UG/DO / BRAND NAME NOT SPECIFIED [Concomitant]
     Dosage: 100 UG/DOSIS (MICROGRAM PER DOSIS):UNIT DOSE:1DOSAGEFORMTHERAPY START DATE:ASKED BUT UNKNOWN:THERAPY
  10. SIMVASTATINE TABLET FO 40MG / BRAND NAME NOT SPECIFIED [Concomitant]
     Active Substance: SIMVASTATIN
     Dosage: 40 MG (MILLIGRAM)THERAPY START DATE:ASKED BUT UNKNOWN:THERAPY END DATE :ASKED BUT UNKNOWN
  11. CALCIUMCARBONAAT KAUWTABLET 1,25G (500MG CA) / BRAND NAME NOT SPECIFIE [Concomitant]
     Dosage: 1.25 G (GRAM):UNIT DOSE:1DOSAGEFORMTHERAPY START DATE:ASKED BUT UNKNOWN:THERAPY END DATE :ASKED BUT

REACTIONS (5)
  - Confusional state [Recovered/Resolved]
  - Hypomagnesaemia [Recovered/Resolved]
  - Hypocalcaemia [Recovered/Resolved]
  - Hypokalaemia [Recovered/Resolved]
  - Diarrhoea [Recovered/Resolved]

NARRATIVE: CASE EVENT DATE: 20210127
